FAERS Safety Report 10177718 (Version 1)
Quarter: 2014Q2

REPORT INFORMATION
  Report Type: Spontaneous
  Country: US (occurrence: US)
  Receive Date: 20140516
  Receipt Date: 20140516
  Transmission Date: 20141212
  Serious: No
  Sender: FDA-Public Use
  Company Number: US-SA-2014SA041448

PATIENT
  Sex: Female

DRUGS (9)
  1. APIDRA SOLOSTAR [Suspect]
     Indication: TYPE 1 DIABETES MELLITUS
     Dosage: DOSE: 1-2 UNITS?EVENING MEAL
     Route: 065
     Dates: start: 20140319
  2. HUMALIN [Concomitant]
  3. HUMALOG [Concomitant]
  4. NOVOLOG [Concomitant]
  5. METFORMIN [Concomitant]
  6. GLYBURIDE [Concomitant]
  7. LEVEMIR [Concomitant]
  8. LANTUS [Concomitant]
  9. SOLOSTAR [Concomitant]

REACTIONS (4)
  - Hyperhidrosis [Unknown]
  - Visual impairment [Unknown]
  - Insomnia [Unknown]
  - Blood glucose abnormal [Unknown]
